FAERS Safety Report 7515703-X (Version None)
Quarter: 2011Q2

REPORT INFORMATION
  Report Type: 
  Country: None (occurrence: None)
  Receive Date: 20110601
  Receipt Date: 20110530
  Transmission Date: 20111010
  Serious: Yes (Other)
  Sender: FDA-Public Use
  Company Number: US-PFIZER INC-2010078307

PATIENT
  Sex: Female

DRUGS (3)
  1. NICORETTE [Suspect]
     Dosage: UNK
  2. COMMIT [Suspect]
     Dosage: UNK
  3. CHANTIX [Suspect]
     Dosage: UNK

REACTIONS (8)
  - HEAD DISCOMFORT [None]
  - STRESS [None]
  - ABDOMINAL DISCOMFORT [None]
  - ANXIETY [None]
  - SUICIDAL IDEATION [None]
  - FLATULENCE [None]
  - DEPRESSION [None]
  - NICOTINE DEPENDENCE [None]
